FAERS Safety Report 21901575 (Version 4)
Quarter: 2023Q4

REPORT INFORMATION
  Report Type: Report from Study
  Country: ES (occurrence: None)
  Receive Date: 20230123
  Receipt Date: 20231129
  Transmission Date: 20240110
  Serious: Yes (Hospitalization)
  Sender: FDA-Public Use
  Company Number: ES-ROCHE-2993148

PATIENT
  Age: 71 Year
  Sex: Male
  Weight: 109 kg

DRUGS (18)
  1. MOSUNETUZUMAB [Suspect]
     Active Substance: MOSUNETUZUMAB
     Indication: Non-Hodgkin^s lymphoma
     Dosage: ON 30/NOV/2021, FROM 11:55 AM TO 1: 55 PM HE TOOK MOST RECENT DOSE 30 MG PRIOR TO AE/SAE
     Route: 042
     Dates: start: 20211109
  2. LENALIDOMIDE [Suspect]
     Active Substance: LENALIDOMIDE
     Indication: Non-Hodgkin^s lymphoma
     Dosage: ON 20/DEC/2021 AT 9:00 AM HE TOOK MOST RECENT DOSE 20 MG PRIOR TO AE/SAE
     Route: 048
     Dates: start: 20211130
  3. DEXAMETHASONE [Concomitant]
     Active Substance: DEXAMETHASONE
     Indication: Premedication
     Route: 042
     Dates: start: 20211130, end: 20211130
  4. DEXCHLORPHENIRAMINE [Concomitant]
     Active Substance: DEXCHLORPHENIRAMINE
     Indication: Premedication
     Route: 042
     Dates: start: 20211130, end: 20211130
  5. ACETAMINOPHEN [Concomitant]
     Active Substance: ACETAMINOPHEN
     Indication: Premedication
     Route: 048
     Dates: start: 20211130, end: 20211130
  6. ACETAMINOPHEN [Concomitant]
     Active Substance: ACETAMINOPHEN
     Indication: Neck pain
     Route: 048
     Dates: start: 20211129
  7. TRAMADOL [Concomitant]
     Active Substance: TRAMADOL\TRAMADOL HYDROCHLORIDE
     Indication: Neck pain
     Dates: start: 202107, end: 20211128
  8. TRAMADOL [Concomitant]
     Active Substance: TRAMADOL\TRAMADOL HYDROCHLORIDE
     Route: 048
     Dates: start: 20211129
  9. NOLOTIL [Concomitant]
     Indication: Neck pain
     Route: 048
     Dates: start: 202107, end: 20211128
  10. METAMIZOLE [Concomitant]
     Active Substance: METAMIZOLE
     Indication: Neck pain
     Route: 048
     Dates: start: 202107, end: 20211128
  11. HYDROXYZINE [Concomitant]
     Active Substance: HYDROXYZINE HYDROCHLORIDE
     Indication: Pruritus
     Route: 048
     Dates: start: 20211128, end: 20211129
  12. SIMVASTATIN [Concomitant]
     Active Substance: SIMVASTATIN
     Indication: Dyslipidaemia
     Route: 048
     Dates: start: 2015
  13. ALLOPURINOL [Concomitant]
     Active Substance: ALLOPURINOL
     Indication: Hyperuricaemia
     Route: 048
     Dates: start: 2015
  14. RAMIPRIL [Concomitant]
     Active Substance: RAMIPRIL
     Indication: Hypertension
     Route: 048
     Dates: start: 2015
  15. ASPIRIN [Concomitant]
     Active Substance: ASPIRIN
     Route: 048
     Dates: start: 20211130
  16. OMEPRAZOLE [Concomitant]
     Active Substance: OMEPRAZOLE
     Route: 048
     Dates: start: 20220104
  17. AMLODIPINE [Concomitant]
     Active Substance: AMLODIPINE BESYLATE
     Route: 048
     Dates: start: 20220104
  18. COTRIMOXAZOLE [Concomitant]
     Active Substance: SULFAMETHOXAZOLE\TRIMETHOPRIM
     Indication: Prophylaxis
     Dates: start: 20220117

REACTIONS (1)
  - Pneumonitis [Recovered/Resolved]

NARRATIVE: CASE EVENT DATE: 20211228
